FAERS Safety Report 8319514-7 (Version None)
Quarter: 2012Q2

REPORT INFORMATION
  Report Type: 
  Country: None (occurrence: None)
  Receive Date: 20120427
  Receipt Date: 20120424
  Transmission Date: 20120825
  Serious: Yes (Death, Hospitalization)
  Sender: FDA-Public Use
  Company Number: BE-AMGEN-BELNI2012015693

PATIENT
  Age: 79 Year
  Sex: Male

DRUGS (5)
  1. FLECAINIDE ACETATE [Concomitant]
     Dosage: 100 MG, UNK
     Route: 048
     Dates: start: 20060101
  2. LANTUS [Concomitant]
     Dosage: UNK UNK, PRN
     Dates: start: 20051101
  3. NOVORAPID [Concomitant]
     Dosage: UNK UNK, PRN
     Dates: start: 20051101
  4. ROMIPLOSTIM [Suspect]
     Indication: THROMBOCYTOPENIA
     Dosage: 3 MUG/KG, QWK
     Route: 058
     Dates: start: 20110526, end: 20110817
  5. BISOPROLOL FUMARATE [Concomitant]
     Dosage: 10 MG, UNK
     Route: 048
     Dates: start: 20050801

REACTIONS (2)
  - MYOCARDIAL INFARCTION [None]
  - SUDDEN DEATH [None]
